FAERS Safety Report 6292519-6 (Version None)
Quarter: 2009Q3

REPORT INFORMATION
  Report Type: 
  Country: None (occurrence: None)
  Receive Date: 20090730
  Receipt Date: 20090730
  Transmission Date: 20100115
  Serious: Yes (Other)
  Sender: FDA-Public Use
  Company Number: None

PATIENT
  Sex: Female
  Weight: 72.5755 kg

DRUGS (1)
  1. CYMBALTA [Suspect]
     Indication: CYSTITIS INTERSTITIAL
     Dosage: 1 CAPSULE DAILY PO
     Route: 048
     Dates: start: 20070907, end: 20081117

REACTIONS (4)
  - ABORTION SPONTANEOUS [None]
  - BLOOD URINE PRESENT [None]
  - CYSTITIS INTERSTITIAL [None]
  - PYURIA [None]
